FAERS Safety Report 4840654-9 (Version None)
Quarter: 2005Q4

REPORT INFORMATION
  Report Type: 
  Country: None (occurrence: None)
  Receive Date: 20051024
  Receipt Date: 20051024
  Transmission Date: 20060501
  Serious: Yes (Hospitalization)
  Sender: FDA-Public Use
  Company Number: 1781-182

PATIENT
  Age: 63 Year
  Sex: Female
  Weight: 50.8029 kg

DRUGS (1)
  1. AMINOPHYLLINE [Suspect]
     Indication: CARDIAC STRESS TEST
     Dates: start: 20050531

REACTIONS (2)
  - DRUG HYPERSENSITIVITY [None]
  - URTICARIA GENERALISED [None]
